FAERS Safety Report 21706952 (Version 7)
Quarter: 2023Q4

REPORT INFORMATION
  Report Type: Spontaneous
  Country: US (occurrence: US)
  Receive Date: 20221209
  Receipt Date: 20231110
  Transmission Date: 20240109
  Serious: No
  Sender: FDA-Public Use
  Company Number: US-CYCLE PHARMACEUTICALS LTD-2022-CYC-000041

PATIENT

DRUGS (8)
  1. NITYR [Suspect]
     Active Substance: NITISINONE
     Indication: Tyrosinaemia
     Dosage: 3 TABLETS BY MOUTH, BID
     Route: 048
     Dates: start: 20190801, end: 202211
  2. NITYR [Suspect]
     Active Substance: NITISINONE
     Dosage: 2 TABLETS BY MOUTH,10 MG BID
     Route: 048
  3. NITYR [Suspect]
     Active Substance: NITISINONE
     Dosage: 3 TABLETS BY MOUTH, DILUTE EACH TABLET IN 2.6 ML OF WATER USING ORAL SYRINGE, THEN GIVE 2.6 ML.
     Route: 048
  4. NITYR [Suspect]
     Active Substance: NITISINONE
     Dosage: 30 MG, QD
     Route: 048
  5. NITYR [Suspect]
     Active Substance: NITISINONE
     Dosage: 4, 5 MG TABLETS PER DAY (20 MG)
     Route: 048
  6. NITYR [Suspect]
     Active Substance: NITISINONE
     Indication: Tyrosinaemia
     Dosage: 10 MG, QD
     Route: 048
  7. NITYR [Suspect]
     Active Substance: NITISINONE
     Dosage: 20 MG, BID
     Route: 048
  8. NITYR [Suspect]
     Active Substance: NITISINONE
     Dosage: 20 MG, QD (TWO TABLETS)
     Route: 048

REACTIONS (13)
  - Nasopharyngitis [Unknown]
  - Cough [Unknown]
  - Nasal congestion [Unknown]
  - Pain [Unknown]
  - Product dose omission issue [Unknown]
  - Product dose omission issue [Unknown]
  - Corneal disorder [Not Recovered/Not Resolved]
  - Photophobia [Not Recovered/Not Resolved]
  - Eye irritation [Unknown]
  - Eyelid margin crusting [Unknown]
  - Eye disorder [Recovered/Resolved]
  - Therapy change [Recovered/Resolved]
  - Product dose omission issue [Recovered/Resolved]

NARRATIVE: CASE EVENT DATE: 20221101
